FAERS Safety Report 8229080-2 (Version None)
Quarter: 2012Q1

REPORT INFORMATION
  Report Type: 
  Country: None (occurrence: None)
  Receive Date: 20120322
  Receipt Date: 20120309
  Transmission Date: 20120608
  Serious: Yes (Other)
  Sender: FDA-Public Use
  Company Number: GB-WATSON-2012-04657

PATIENT
  Age: 8 Year
  Sex: Male

DRUGS (1)
  1. TOPIRAMATE [Suspect]
     Indication: EPILEPSY
     Dosage: 15 ML, ONE FOR EVERY 2 DAYS, 25 MG/5ML STRENGTH
     Route: 048
     Dates: end: 20120304

REACTIONS (2)
  - EPILEPSY [None]
  - DRUG INEFFECTIVE [None]
